FAERS Safety Report 5102981-X (Version None)
Quarter: 2006Q3

REPORT INFORMATION
  Report Type: 
  Country: None (occurrence: None)
  Receive Date: 20060908
  Receipt Date: 20060823
  Transmission Date: 20061208
  Serious: Yes (Other)
  Sender: FDA-Public Use
  Company Number: US018046

PATIENT
  Age: 39 Year
  Sex: Male

DRUGS (12)
  1. TRISENOX [Suspect]
     Indication: ACUTE PROMYELOCYTIC LEUKAEMIA
     Dosage: 10.98 MG QD INTRAVENOUS DRIP
     Route: 041
     Dates: start: 20060307, end: 20060405
  2. TRISENOX [Suspect]
     Indication: ACUTE PROMYELOCYTIC LEUKAEMIA
     Dosage: 10.98 MG QD INTRAVENOUS DRIP
     Route: 041
     Dates: start: 20060413, end: 20060508
  3. TRISENOX [Suspect]
     Indication: ACUTE PROMYELOCYTIC LEUKAEMIA
     Dosage: 11.43 MG QD INTRAVENOUS DRIP
     Route: 041
     Dates: start: 20060531, end: 20060616
  4. TRISENOX [Suspect]
     Indication: ACUTE PROMYELOCYTIC LEUKAEMIA
     Dosage: 11.43 MG QD INTRAVENOUS DRIP
     Route: 041
     Dates: start: 20060619, end: 20060626
  5. CYTARABINE [Suspect]
     Dosage: 40 MG QD INTRATHECAL
     Route: 037
     Dates: start: 20060606, end: 20060718
  6. METHOTREXATE [Suspect]
     Dosage: 15 MG QD INTRATHECAL
     Route: 037
     Dates: start: 20060606, end: 20060718
  7. DEXAMETHASONE SODIUM PHOSPHATE [Suspect]
     Dosage: 4 MG QD INTRATHECAL
     Route: 037
     Dates: start: 20060606, end: 20060718
  8. ELECTROLYTE SOLUTION [Concomitant]
  9. RANITIDINE HYDROCHLORIDE [Concomitant]
  10. SULFAMETHOXAZOLE + TRIMETHOPRIM [Concomitant]
  11. L-ASPARTATE POTASSIUM [Concomitant]
  12. POTASSIUM CHLORIDE [Concomitant]

REACTIONS (7)
  - ALANINE AMINOTRANSFERASE INCREASED [None]
  - ASPARTATE AMINOTRANSFERASE INCREASED [None]
  - ELECTROCARDIOGRAM QT CORRECTED INTERVAL PROLONGED [None]
  - HEPATIC FUNCTION ABNORMAL [None]
  - HYPERNATRAEMIA [None]
  - HYPOKALAEMIA [None]
  - WHITE BLOOD CELL COUNT DECREASED [None]
